FAERS Safety Report 4814552-0 (Version None)
Quarter: 2005Q4

REPORT INFORMATION
  Report Type: 
  Country: None (occurrence: None)
  Receive Date: 20051028
  Receipt Date: 20020610
  Transmission Date: 20060501
  Serious: Yes (Hospitalization)
  Sender: FDA-Public Use
  Company Number: GB-SOLVAY-00205003455

PATIENT
  Age: 26476 Day
  Sex: Male
  Weight: 65 kg

DRUGS (3)
  1. AMLODIPINE [Concomitant]
     Indication: ILL-DEFINED DISORDER
     Dosage: DAILY DOSE:  UNKNOWN
     Route: 065
     Dates: start: 20020606
  2. PERINDOPRIL ERBUMINE [Suspect]
     Indication: CARDIAC FAILURE CONGESTIVE
     Dosage: DAILY DOSE: 4 MILLIGRAM(S)
     Route: 048
     Dates: start: 20001201, end: 20040506
  3. BENDROFLUAZIDE [Concomitant]
     Indication: ILL-DEFINED DISORDER
     Dosage: DAILY DOSE:  UNKNOWN
     Route: 065
     Dates: start: 20020606

REACTIONS (8)
  - CEREBROVASCULAR ACCIDENT [None]
  - DYSARTHRIA [None]
  - FALL [None]
  - HEMIPARESIS [None]
  - HYPERTROPHIC CARDIOMYOPATHY [None]
  - LOWER RESPIRATORY TRACT INFECTION [None]
  - MITRAL VALVE INCOMPETENCE [None]
  - SILENT MYOCARDIAL INFARCTION [None]
